FAERS Safety Report 10071921 (Version 1)
Quarter: 2014Q2

REPORT INFORMATION
  Report Type: Spontaneous
  Country: US (occurrence: US)
  Receive Date: 20140411
  Receipt Date: 20140411
  Transmission Date: 20141212
  Serious: Yes (Disabling)
  Sender: FDA-Public Use
  Company Number: US-ROCHE-1380481

PATIENT
  Sex: Female

DRUGS (11)
  1. XELODA [Suspect]
     Indication: HEPATIC CANCER
     Dosage: 1000 MG IN MORNING AND 500 MG AT EVENING
     Route: 048
     Dates: start: 20121219, end: 2014
  2. XELODA [Suspect]
     Indication: NEUROENDOCRINE TUMOUR
  3. XELODA [Suspect]
     Indication: NEOPLASM
  4. TRAMADOL [Concomitant]
  5. LEVOTHYROXINE [Concomitant]
  6. ASA [Concomitant]
     Route: 065
  7. TEMODAR [Concomitant]
  8. CARAFATE [Concomitant]
  9. OMEPRAZOLE [Concomitant]
  10. PROCRIT [Concomitant]
  11. ONDANSETRON [Concomitant]

REACTIONS (5)
  - Dehydration [Not Recovered/Not Resolved]
  - Rash [Not Recovered/Not Resolved]
  - Nausea [Not Recovered/Not Resolved]
  - Vomiting [Not Recovered/Not Resolved]
  - Blister [Not Recovered/Not Resolved]
